FAERS Safety Report 16257039 (Version 2)
Quarter: 2019Q2

REPORT INFORMATION
  Report Type: Spontaneous
  Country: FR (occurrence: FR)
  Receive Date: 20190430
  Receipt Date: 20190628
  Transmission Date: 20190711
  Serious: Yes (Other)
  Sender: FDA-Public Use
  Company Number: FR-009507513-1904FRA012113

PATIENT
  Age: 77 Year
  Sex: Male

DRUGS (5)
  1. EMEND [Suspect]
     Active Substance: APREPITANT
     Indication: PROPHYLAXIS OF NAUSEA AND VOMITING
     Dosage: 125 MG ON D1 THEN 80MG ON D2 AND D3
     Route: 048
     Dates: start: 20190306, end: 20190306
  2. SOLU-MEDROL [Suspect]
     Active Substance: METHYLPREDNISOLONE SODIUM SUCCINATE
     Indication: ALLERGY PROPHYLAXIS
     Dosage: 40 MILLIGRAM, CYCLICAL
     Route: 041
     Dates: start: 20190306, end: 20190306
  3. ONDANSETRON [Suspect]
     Active Substance: ONDANSETRON
     Dosage: 8 MILLIGRAM, CYCLICAL
     Dates: start: 20190306, end: 20190306
  4. OXALIPLATINE ACCOR [Suspect]
     Active Substance: OXALIPLATIN
     Indication: ADENOCARCINOMA OF COLON
     Dosage: 132 MILLIGRAM, CYCLICAL
     Route: 041
     Dates: start: 20190306, end: 20190306
  5. AVASTIN [Suspect]
     Active Substance: BEVACIZUMAB
     Indication: ADENOCARCINOMA OF COLON
     Dosage: 420 MILLIGRAM, CYCLICAL
     Route: 041
     Dates: start: 20190306, end: 20190306

REACTIONS (5)
  - Erythema [Recovered/Resolved]
  - Hypotension [Recovered/Resolved]
  - Cough [Recovered/Resolved]
  - Hypersensitivity [Recovered/Resolved]
  - Malaise [Recovered/Resolved]

NARRATIVE: CASE EVENT DATE: 20190306
